FAERS Safety Report 23246574 (Version 1)
Quarter: 2023Q4

REPORT INFORMATION
  Report Type: Spontaneous
  Country: DE (occurrence: DE)
  Receive Date: 20231130
  Receipt Date: 20231130
  Transmission Date: 20240109
  Serious: Yes (Hospitalization)
  Sender: FDA-Public Use
  Company Number: DE-BAYER-2023A138411

PATIENT
  Age: 67 Year
  Sex: Male
  Weight: 124 kg

DRUGS (10)
  1. NUBEQA [Suspect]
     Active Substance: DAROLUTAMIDE
     Indication: Hormone-refractory prostate cancer
     Dosage: 600 MG, BID
     Route: 048
     Dates: start: 20230911, end: 20230921
  2. FIRMAGON [Suspect]
     Active Substance: DEGARELIX ACETATE
     Indication: Prostate cancer
     Dosage: 40 MG, EVERY FOUR WEEKS (Q28D)
     Route: 058
     Dates: start: 20230809, end: 20230921
  3. CANDESARTAN [Concomitant]
     Active Substance: CANDESARTAN
     Indication: Hypertension
     Dosage: 8 MG
     Route: 048
  4. LERCADIP [LERCANIDIPINE] [Concomitant]
     Indication: Hypertension
     Dosage: 10 MG
     Route: 048
  5. APIXABAN [Concomitant]
     Active Substance: APIXABAN
     Dosage: UNK
  6. METOPROLOL [Concomitant]
     Active Substance: METOPROLOL
     Dosage: UNK
  7. DOCETAXEL [Concomitant]
     Active Substance: DOCETAXEL\DOCETAXEL ANHYDROUS
     Indication: Prostate cancer
     Dosage: 184.02 MG EVERY THREE WEEKS
     Dates: start: 20230918, end: 20230921
  8. METAMIZOLE SODIUM [Concomitant]
     Active Substance: METAMIZOLE SODIUM
     Indication: Pain
     Dosage: 500MG
     Route: 048
  9. ASPIRIN [Concomitant]
     Active Substance: ASPIRIN
     Indication: Carotid artery stenosis
     Dosage: 100 MG
     Route: 048
     Dates: start: 20220415
  10. ATORVASTATIN [Concomitant]
     Active Substance: ATORVASTATIN
     Indication: Hypertension
     Dosage: 20MG
     Route: 048

REACTIONS (2)
  - Atrial fibrillation [Recovered/Resolved with Sequelae]
  - Presyncope [Recovered/Resolved with Sequelae]

NARRATIVE: CASE EVENT DATE: 20230921
